FAERS Safety Report 8140500-4 (Version None)
Quarter: 2012Q1

REPORT INFORMATION
  Report Type: 
  Country: None (occurrence: None)
  Receive Date: 20120216
  Receipt Date: 20120213
  Transmission Date: 20120608
  Serious: Yes (Death, Other)
  Sender: FDA-Public Use
  Company Number: US-PFIZER INC-2012039454

PATIENT
  Age: 80 Year
  Sex: Male

DRUGS (1)
  1. LIPITOR [Suspect]
     Indication: BLOOD CHOLESTEROL ABNORMAL
     Dosage: UNK

REACTIONS (4)
  - EUTHANASIA [None]
  - DIALYSIS [None]
  - HAEMODIALYSIS COMPLICATION [None]
  - QUALITY OF LIFE DECREASED [None]
